FAERS Safety Report 7520335-3 (Version None)
Quarter: 2011Q2

REPORT INFORMATION
  Report Type: 
  Country: None (occurrence: None)
  Receive Date: 20110602
  Receipt Date: 20100305
  Transmission Date: 20111010
  Serious: No
  Sender: FDA-Public Use
  Company Number: US-BAYER-201015697NA

PATIENT
  Sex: Female

DRUGS (1)
  1. AVELOX [Suspect]
     Route: 048

REACTIONS (1)
  - DIZZINESS [None]
